FAERS Safety Report 18050581 (Version 4)
Quarter: 2020Q3

REPORT INFORMATION
  Report Type: Report from Study
  Country: EG (occurrence: EG)
  Receive Date: 20200721
  Receipt Date: 20200915
  Transmission Date: 20201103
  Serious: Yes (Other)
  Sender: FDA-Public Use
  Company Number: EG-JNJFOC-20200527550

PATIENT
  Age: 47 Year
  Sex: Male
  Weight: 105 kg

DRUGS (5)
  1. MARINOL [Concomitant]
     Active Substance: DRONABINOL
  2. DARZALEX [Suspect]
     Active Substance: DARATUMUMAB
     Indication: PLASMA CELL MYELOMA
     Route: 065
  3. VELCADE [Concomitant]
     Active Substance: BORTEZOMIB
     Indication: PLASMA CELL MYELOMA
     Route: 065
  4. TRAMADOL. [Concomitant]
     Active Substance: TRAMADOL
  5. TAVANIC [Concomitant]
     Active Substance: LEVOFLOXACIN

REACTIONS (4)
  - Pneumonia [Not Recovered/Not Resolved]
  - Haemoglobin decreased [Unknown]
  - Decreased immune responsiveness [Recovering/Resolving]
  - Corneal bleeding [Recovered/Resolved]

NARRATIVE: CASE EVENT DATE: 20200408
